FAERS Safety Report 5803108-9 (Version None)
Quarter: 2008Q2

REPORT INFORMATION
  Report Type: 
  Country: None (occurrence: None)
  Receive Date: 20080626
  Receipt Date: 20071010
  Transmission Date: 20081010
  Serious: Yes (Life-Threatening)
  Sender: FDA-Public Use
  Company Number: VISP-PR-0710S-0451

PATIENT
  Age: 58 Year
  Sex: Female

DRUGS (1)
  1. VISIPAQUE [Suspect]
     Indication: PANCREATITIS
     Dosage: 100 MG, SINGLE DOSE, I.V.
     Route: 042
     Dates: start: 20071010, end: 20071010

REACTIONS (1)
  - ANAPHYLACTOID REACTION [None]
